FAERS Safety Report 9694636 (Version 1)
Quarter: 2013Q4

REPORT INFORMATION
  Report Type: Spontaneous
  Country: US (occurrence: US)
  Receive Date: 20131119
  Receipt Date: 20131119
  Transmission Date: 20140711
  Serious: Yes (Other)
  Sender: FDA-Public Use
  Company Number: US-AMGEN-USASP2013081066

PATIENT
  Sex: Male

DRUGS (4)
  1. XGEVA [Suspect]
     Indication: PRODUCT USED FOR UNKNOWN INDICATION
     Route: 065
  2. ZYTIGA [Concomitant]
  3. PREDNISONE [Concomitant]
  4. LUPRON [Concomitant]
     Dosage: UNK UNK, Q6MO

REACTIONS (5)
  - Bedridden [Unknown]
  - Back pain [Unknown]
  - Decreased appetite [Unknown]
  - Malaise [Unknown]
  - Asthenia [Unknown]
